FAERS Safety Report 5933391-0 (Version None)
Quarter: 2008Q4

REPORT INFORMATION
  Report Type: 
  Country: None (occurrence: None)
  Receive Date: 20081023
  Receipt Date: 20081008
  Transmission Date: 20090506
  Serious: Yes (Hospitalization)
  Sender: FDA-Public Use
  Company Number: 20080288

PATIENT
  Age: 35 Year
  Sex: Female

DRUGS (12)
  1. CALCIUM GLUCONATE [Suspect]
     Indication: MINERAL SUPPLEMENTATION
     Dosage: 14.98 MEQ INTRAVENOUS
     Route: 042
     Dates: start: 20081001, end: 20081001
  2. MAGNESIUM SULFATE [Concomitant]
  3. SELENIUM [Concomitant]
  4. CHROMIC CHLORIDE [Concomitant]
  5. MANGANESE SULFATE [Concomitant]
  6. ZINC SULFATE [Concomitant]
  7. ASCORBIC ACID [Concomitant]
  8. PYRIDOXINE HYDROCHLORIDE [Concomitant]
  9. VITAMIN B COMPLEX CAP [Concomitant]
  10. HYDROXY B12 [Concomitant]
  11. FOLIC ACID [Concomitant]
  12. SODIUM CHLORIDE 0.9% [Concomitant]

REACTIONS (14)
  - CHILLS [None]
  - DIARRHOEA [None]
  - HEADACHE [None]
  - HYPOTENSION [None]
  - LIVER FUNCTION TEST ABNORMAL [None]
  - MYALGIA [None]
  - NAUSEA [None]
  - NEUTROPENIA [None]
  - OFF LABEL USE [None]
  - RETCHING [None]
  - SEPTIC SHOCK [None]
  - THROMBOCYTOPENIA [None]
  - VOMITING [None]
  - WHITE BLOOD CELL COUNT DECREASED [None]
